FAERS Safety Report 8762487 (Version 3)
Quarter: 2014Q1

REPORT INFORMATION
  Report Type: Spontaneous
  Country: US (occurrence: US)
  Receive Date: 20120829
  Receipt Date: 20140121
  Transmission Date: 20141002
  Serious: No
  Sender: FDA-Public Use
  Company Number: US-PFIZER INC-2012211350

PATIENT
  Age: 63 Year
  Sex: Female
  Weight: 53.97 kg

DRUGS (5)
  1. EFFEXOR XR [Suspect]
     Indication: DEPRESSION
     Dosage: 87.5 MG, DAILY (ONE CAPSULE OF 50MG AND ANOTHER OF 37.5MG)
  2. EFFEXOR XR [Suspect]
     Dosage: UNK
     Dates: end: 201208
  3. EFFEXOR XR [Suspect]
     Dosage: UNK
     Dates: end: 2013
  4. HYDROCHLOROTHIAZIDE [Concomitant]
     Indication: BLOOD PRESSURE ABNORMAL
     Dosage: 25 MG, DAILY
  5. ENALAPRIL [Concomitant]
     Indication: BLOOD PRESSURE ABNORMAL
     Dosage: 10 MG, DAILY

REACTIONS (4)
  - Malaise [Unknown]
  - Abnormal dreams [Unknown]
  - Confusional state [Unknown]
  - Malaise [Not Recovered/Not Resolved]
